FAERS Safety Report 5190408-1 (Version None)
Quarter: 2006Q4

REPORT INFORMATION
  Report Type: 
  Country: None (occurrence: None)
  Receive Date: 20061222
  Receipt Date: 20061207
  Transmission Date: 20070319
  Serious: Yes (Other)
  Sender: FDA-Public Use
  Company Number: US-ROCHE-474499

PATIENT
  Age: 46 Year
  Sex: Female

DRUGS (5)
  1. PEGASYS [Suspect]
     Dosage: STRENGTH REPORTED AS 180 MCG / 0.5 ML. ADMINISTERED Q WEEK.
     Route: 058
     Dates: start: 20061117
  2. COPEGUS [Suspect]
     Route: 048
     Dates: start: 20061117, end: 20061211
  3. COPEGUS [Suspect]
     Route: 048
     Dates: start: 20061211
  4. COZAAR [Concomitant]
     Indication: HYPERTENSION
     Route: 048
  5. MAXZIDE [Concomitant]
     Indication: HYPERTENSION
     Route: 048

REACTIONS (8)
  - ANAEMIA [None]
  - ASTHENIA [None]
  - ASTHMA [None]
  - DIZZINESS [None]
  - FATIGUE [None]
  - HAEMORRHAGE [None]
  - NAUSEA [None]
  - RETCHING [None]
